FAERS Safety Report 8034613-5 (Version None)
Quarter: 2012Q1

REPORT INFORMATION
  Report Type: 
  Country: None (occurrence: None)
  Receive Date: 20120110
  Receipt Date: 20120106
  Transmission Date: 20120608
  Serious: No
  Sender: FDA-Public Use
  Company Number: US-B.I. PHARMACEUTICALS,INC./RIDGEFIELD-2011-BP-06862BP

PATIENT
  Sex: Male

DRUGS (1)
  1. PRADAXA [Suspect]

REACTIONS (4)
  - DIARRHOEA [None]
  - PRURITUS [None]
  - DECREASED APPETITE [None]
  - RASH PRURITIC [None]
